FAERS Safety Report 6326336-5 (Version None)
Quarter: 2009Q3

REPORT INFORMATION
  Report Type: 
  Country: None (occurrence: None)
  Receive Date: 20090819
  Receipt Date: 20090805
  Transmission Date: 20100115
  Serious: No
  Sender: FDA-Public Use
  Company Number: B0588799A

PATIENT
  Sex: Female

DRUGS (5)
  1. ONDANSETRON HYDROCHLORIDE [Suspect]
     Indication: DRUG USE FOR UNKNOWN INDICATION
  2. FOLIC ACID [Suspect]
     Indication: DRUG USE FOR UNKNOWN INDICATION
  3. PRENATAL VITAMINS ( FORMULATION UNKNOWN) (PRENATAL VITAMINS) [Suspect]
     Indication: DRUG USE FOR UNKNOWN INDICATION
  4. AMPICILLIN TRIHYDRATE [Suspect]
     Indication: DRUG USE FOR UNKNOWN INDICATION
     Dosage: INTRAVENOUS
     Route: 042
  5. AZITHROMYCIN [Suspect]
     Indication: DRUG USE FOR UNKNOWN INDICATION
     Dosage: ORAL
     Route: 048

REACTIONS (9)
  - BACTERIA URINE IDENTIFIED [None]
  - CAESAREAN SECTION [None]
  - CHORIOAMNIONITIS [None]
  - DRUG EXPOSURE DURING PREGNANCY [None]
  - LARGE INTESTINE PERFORATION [None]
  - REFUSAL OF TREATMENT BY PATIENT [None]
  - SINUS CONGESTION [None]
  - UPPER RESPIRATORY TRACT INFECTION [None]
  - UTERINE CONTRACTIONS ABNORMAL [None]
